FAERS Safety Report 8184648-7 (Version None)
Quarter: 2012Q1

REPORT INFORMATION
  Report Type: 
  Country: None (occurrence: None)
  Receive Date: 20120305
  Receipt Date: 20120301
  Transmission Date: 20120608
  Serious: Yes (Life-Threatening, Hospitalization)
  Sender: FDA-Public Use
  Company Number: DE-B.I. PHARMACEUTICALS,INC./RIDGEFIELD-2011-DE-06231DE

PATIENT
  Sex: Male
  Weight: 101 kg

DRUGS (1)
  1. PRADAXA [Suspect]
     Indication: ATRIAL FIBRILLATION
     Dosage: 2 ANZ
     Route: 048
     Dates: start: 20110922, end: 20110926

REACTIONS (3)
  - HEPATITIS TOXIC [None]
  - ACUTE HEPATIC FAILURE [None]
  - HEPATIC ENZYME ABNORMAL [None]
